FAERS Safety Report 6617790-X (Version None)
Quarter: 2010Q1

REPORT INFORMATION
  Report Type: 
  Country: None (occurrence: None)
  Receive Date: 20100308
  Receipt Date: 20100302
  Transmission Date: 20100710
  Serious: Yes (Death, Hospitalization)
  Sender: FDA-Public Use
  Company Number: FR-BAYER-201017633GPV

PATIENT
  Age: 59 Year
  Sex: Male
  Weight: 73 kg

DRUGS (19)
  1. SORAFENIB [Suspect]
     Indication: DRUG USE FOR UNKNOWN INDICATION
     Dosage: TOTAL DAILY DOSE: 800 MG
     Route: 048
     Dates: start: 20091209
  2. ERLOTINIB [Suspect]
     Indication: DRUG USE FOR UNKNOWN INDICATION
     Route: 048
     Dates: start: 20091209, end: 20091231
  3. ERLOTINIB [Suspect]
     Route: 048
     Dates: start: 20100101, end: 20100106
  4. TAREG [Concomitant]
     Indication: HYPERTENSION
     Route: 048
     Dates: start: 20091201
  5. METFORMIN HYDROCHLORIDE [Concomitant]
     Indication: DIABETES MELLITUS
     Dosage: AS USED: 15 / 850 MG
     Dates: start: 20091002
  6. DIAMICRON [Concomitant]
     Indication: DIABETES MELLITUS
     Route: 048
     Dates: start: 20070601
  7. TRAMADOL HCL [Concomitant]
     Indication: HEPATIC PAIN
     Route: 048
     Dates: start: 20091101
  8. PRIMPERAN [Concomitant]
     Indication: NAUSEA
     Route: 048
     Dates: start: 20091202
  9. SMECTA [SMECTITE] [Concomitant]
     Indication: DIARRHOEA
     Route: 048
     Dates: start: 20091214, end: 20100112
  10. SPASFON-LYOC [Concomitant]
     Indication: DIARRHOEA
     Route: 048
     Dates: start: 20091214
  11. IMODIUM [Concomitant]
     Indication: DIARRHOEA
     Route: 048
     Dates: start: 20100106, end: 20100112
  12. IMODIUM [Concomitant]
     Route: 048
     Dates: start: 20091217, end: 20100104
  13. IMODIUM [Concomitant]
     Route: 048
     Dates: start: 20100117
  14. FUCIDINE [Concomitant]
     Indication: RASH
     Dosage: 1 APP
     Route: 048
     Dates: start: 20091231, end: 20100113
  15. LOCOID [Concomitant]
     Indication: RASH
     Dosage: 1 APP
     Route: 048
     Dates: start: 20091231, end: 20100104
  16. LOCOID [Concomitant]
     Dosage: 1 APP
     Route: 061
     Dates: start: 20100106, end: 20100113
  17. DUSPATALIN [Concomitant]
     Indication: DIARRHOEA
     Route: 048
     Dates: start: 20091230, end: 20100112
  18. ALDACTONE [Concomitant]
     Indication: ASCITES
     Route: 048
     Dates: start: 20100106
  19. TOPALGIC LP [Concomitant]
     Indication: HEPATIC PAIN
     Route: 048
     Dates: start: 20100119, end: 20100119

REACTIONS (2)
  - ENCEPHALOPATHY [None]
  - HEPATIC NEOPLASM MALIGNANT [None]
